FAERS Safety Report 6538430-4 (Version None)
Quarter: 2010Q1

REPORT INFORMATION
  Report Type: 
  Country: None (occurrence: None)
  Receive Date: 20100114
  Receipt Date: 20100105
  Transmission Date: 20100710
  Serious: Yes (Death)
  Sender: FDA-Public Use
  Company Number: US-ABBOTT-09P-163-0610560-00

PATIENT
  Age: 81 Year
  Sex: Female

DRUGS (3)
  1. CLARITHROMYCIN [Suspect]
     Indication: GASTRIC ULCER
     Dates: start: 20091022
  2. PREVACID [Suspect]
     Indication: GASTRIC ULCER
     Dates: start: 20091022
  3. AMOXICILLIN [Suspect]
     Indication: GASTRIC ULCER
     Dates: start: 20091022

REACTIONS (1)
  - RESPIRATORY DISTRESS [None]
